FAERS Safety Report 14214850 (Version 1)
Quarter: 2017Q4

REPORT INFORMATION
  Report Type: Spontaneous
  Country: US (occurrence: US)
  Receive Date: 20171122
  Receipt Date: 20171122
  Transmission Date: 20180321
  Serious: No
  Sender: FDA-Public Use
  Company Number: US-ROCHE-1911739

PATIENT
  Age: 54 Year
  Sex: Female

DRUGS (15)
  1. BUPROPION ER [Concomitant]
     Active Substance: BUPROPION
     Route: 065
  2. CLONAZEPAM. [Concomitant]
     Active Substance: CLONAZEPAM
     Route: 048
  3. LEVOTHYROXIN [Concomitant]
     Active Substance: LEVOTHYROXINE
     Route: 065
  4. LISINOPRIL. [Concomitant]
     Active Substance: LISINOPRIL
     Route: 065
  5. TEMAZEPAM. [Concomitant]
     Active Substance: TEMAZEPAM
     Route: 065
  6. TRAMADOL HCL [Concomitant]
     Active Substance: TRAMADOL HYDROCHLORIDE
     Route: 065
  7. TRAZODONE [Concomitant]
     Active Substance: TRAZODONE HYDROCHLORIDE
     Route: 065
  8. HERCEPTIN [Suspect]
     Active Substance: TRASTUZUMAB
     Indication: PRODUCT USED FOR UNKNOWN INDICATION
     Dosage: USE AS DIRECTED BY PHYSICIAN
     Route: 065
     Dates: start: 20170201
  9. KLOR-CON [Concomitant]
     Active Substance: POTASSIUM CHLORIDE
     Route: 065
  10. BUSPIRONE [Concomitant]
     Active Substance: BUSPIRONE HYDROCHLORIDE
     Route: 065
  11. METOCLOPRAMID [Concomitant]
     Active Substance: METOCLOPRAMIDE
     Route: 065
  12. SIMVASTATIN. [Concomitant]
     Active Substance: SIMVASTATIN
     Route: 065
  13. CIPRO [Concomitant]
     Active Substance: CIPROFLOXACIN HYDROCHLORIDE
     Route: 065
  14. IBUPROFEN. [Concomitant]
     Active Substance: IBUPROFEN
     Route: 065
  15. ONDANSETRON [Concomitant]
     Active Substance: ONDANSETRON
     Route: 065

REACTIONS (1)
  - Oral mucosal eruption [Not Recovered/Not Resolved]

NARRATIVE: CASE EVENT DATE: 201702
